FAERS Safety Report 8524481-7 (Version None)
Quarter: 2012Q3

REPORT INFORMATION
  Report Type: 
  Country: None (occurrence: None)
  Receive Date: 20120720
  Receipt Date: 20111109
  Transmission Date: 20120928
  Serious: No
  Sender: FDA-Public Use
  Company Number: US-MYLANLABS-2011S1023390

PATIENT
  Sex: Female

DRUGS (2)
  1. DOXYCYCLINE [Suspect]
     Route: 048
     Dates: start: 20111107, end: 20111108
  2. BUSPIRONE HCL [Suspect]
     Route: 048
     Dates: start: 20111107, end: 20111108

REACTIONS (2)
  - RASH [None]
  - DRUG DISPENSING ERROR [None]
